FAERS Safety Report 9515249 (Version 2)
Quarter: 2014Q1

REPORT INFORMATION
  Report Type: Spontaneous
  Country: US (occurrence: None)
  Receive Date: 20130305
  Receipt Date: 20140306
  Transmission Date: 20141002
  Serious: Yes (Hospitalization, Disabling, Other)
  Sender: FDA-Public Use
  Company Number: 163-21880-12121465

PATIENT
  Age: 55 Year
  Sex: Female
  Weight: 84.82 kg

DRUGS (7)
  1. REVLIMID (LENALIDOMIDE) (CAPSULES) [Suspect]
     Indication: PLASMA CELL MYELOMA
     Dosage: 21 IN 21 D
     Route: 048
     Dates: start: 20121019, end: 20121211
  2. ACYCLOVIR (ACICLOVIR) (ACICLOVIR) [Concomitant]
  3. ASPIRIN (ACETYLSALICYLIC ACID) [Concomitant]
  4. LABETALOL (LABETALOL) [Concomitant]
  5. ZOLOFT (SERTRALINE HYDROCHLORIDE) [Concomitant]
  6. DECADRON (DEXAMETHASONE) [Concomitant]
  7. METOPROLOL [Concomitant]

REACTIONS (2)
  - Bone marrow failure [None]
  - Pneumonia [None]
